FAERS Safety Report 20617152 (Version 1)
Quarter: 2022Q1

REPORT INFORMATION
  Report Type: Report from Study
  Country: IN (occurrence: IN)
  Receive Date: 20220321
  Receipt Date: 20220321
  Transmission Date: 20220423
  Serious: Yes (Hospitalization, Other)
  Sender: FDA-Public Use
  Company Number: IN-ASTELLAS-2022US010334

PATIENT
  Age: 21 Year
  Sex: Male

DRUGS (2)
  1. ISAVUCONAZOLE [Suspect]
     Active Substance: ISAVUCONAZOLE
     Indication: Mucormycosis
     Route: 048
     Dates: start: 20220111
  2. ISAVUCONAZOLE [Suspect]
     Active Substance: ISAVUCONAZOLE
     Route: 048
     Dates: start: 20220113

REACTIONS (11)
  - Haemoglobin decreased [Unknown]
  - COVID-19 [Unknown]
  - Nasal necrosis [Unknown]
  - Nasal crusting [Unknown]
  - Eye swelling [Unknown]
  - Lacrimation increased [Unknown]
  - Nasal congestion [Unknown]
  - Loose tooth [Unknown]
  - Skin swelling [Unknown]
  - Purulent discharge [Unknown]
  - Neutrophil count decreased [Unknown]

NARRATIVE: CASE EVENT DATE: 20220304
